FAERS Safety Report 17130321 (Version 1)
Quarter: 2019Q4

REPORT INFORMATION
  Report Type: Report from Study
  Country: IT (occurrence: IT)
  Receive Date: 20191209
  Receipt Date: 20191209
  Transmission Date: 20200122
  Serious: Yes (Other)
  Sender: FDA-Public Use
  Company Number: IT-MYLANLABS-2019M1119866

PATIENT
  Age: 47 Year
  Sex: Female

DRUGS (1)
  1. COPEMYLTRI [Suspect]
     Active Substance: GLATIRAMER ACETATE
     Indication: MULTIPLE SCLEROSIS
     Dosage: 40 MILLIGRAM, QOD
     Route: 058
     Dates: start: 20190628, end: 20190710

REACTIONS (4)
  - Joint swelling [Recovered/Resolved]
  - Face oedema [Recovered/Resolved]
  - Lip oedema [Recovered/Resolved]
  - Malaise [Recovered/Resolved]

NARRATIVE: CASE EVENT DATE: 20190710
